FAERS Safety Report 6893705-4 (Version None)
Quarter: 2010Q3

REPORT INFORMATION
  Report Type: 
  Country: None (occurrence: None)
  Receive Date: 20100731
  Receipt Date: 20100427
  Transmission Date: 20110219
  Serious: No
  Sender: FDA-Public Use
  Company Number: US-PFIZER INC-2009245890

PATIENT
  Sex: Male
  Weight: 69 kg

DRUGS (17)
  1. NEURONTIN [Suspect]
     Indication: PARAESTHESIA
     Dosage: 600 MG, 3X/DAY
     Route: 048
     Dates: start: 20090701
  2. NEURONTIN [Suspect]
     Indication: PERIPHERAL SENSORY NEUROPATHY
  3. NEURONTIN [Suspect]
     Dosage: 600 MG, 3X/DAY
     Route: 048
     Dates: start: 20090201, end: 20090301
  4. LYRICA [Suspect]
     Indication: PERIPHERAL SENSORY NEUROPATHY
     Dosage: 100 MG, 1X/DAY
     Route: 048
     Dates: start: 20090301
  5. LYRICA [Suspect]
     Dosage: 150MG IN MORNING, 75MG EVENING, 75MG NIGHT
     Route: 048
  6. LYRICA [Suspect]
     Dosage: 150 MG, 3X/DAY
  7. PREVACID [Concomitant]
     Indication: GASTROOESOPHAGEAL REFLUX DISEASE
     Dosage: UNK
     Route: 048
  8. PROCARDIA XL [Concomitant]
     Indication: RAYNAUD'S PHENOMENON
  9. ATIVAN [Concomitant]
     Indication: RAYNAUD'S PHENOMENON
     Dosage: UNK
     Route: 048
  10. DOMPERIDONE [Concomitant]
     Indication: MOVEMENT DISORDER
     Dosage: UNK
  11. REGLAN [Concomitant]
     Indication: MOVEMENT DISORDER
     Dosage: UNK
     Route: 048
  12. VALTREX [Concomitant]
     Indication: HERPES SIMPLEX
     Dosage: UNK
  13. WELLBUTRIN [Concomitant]
     Dosage: UNK
     Route: 048
  14. WELLBUTRIN XL [Concomitant]
     Dosage: UNK
     Route: 048
  15. LUNESTA [Concomitant]
     Dosage: UNK
     Route: 048
  16. ASTEPRO [Concomitant]
     Dosage: UNK
  17. BUSPIRONE [Concomitant]
     Indication: DYSPEPSIA
     Dosage: UNK

REACTIONS (6)
  - ABDOMINAL PAIN UPPER [None]
  - BURNING SENSATION [None]
  - DRUG INEFFECTIVE [None]
  - GROIN PAIN [None]
  - PARAESTHESIA [None]
  - PENILE PAIN [None]
